FAERS Safety Report 5818471-2 (Version None)
Quarter: 2008Q3

REPORT INFORMATION
  Report Type: 
  Country: None (occurrence: None)
  Receive Date: 20080722
  Receipt Date: 20080711
  Transmission Date: 20090109
  Serious: Yes (Congenital Anomaly)
  Sender: FDA-Public Use
  Company Number: US-MERCK-0807USA02995

PATIENT

DRUGS (3)
  1. SINGULAIR [Suspect]
     Route: 064
  2. ZYRTEC [Concomitant]
     Route: 064
  3. VITAMINS (UNSPECIFIED) [Concomitant]
     Route: 064

REACTIONS (2)
  - CLEFT LIP [None]
  - CLEFT PALATE [None]
